FAERS Safety Report 5900337-0 (Version None)
Quarter: 2008Q3

REPORT INFORMATION
  Report Type: 
  Country: None (occurrence: None)
  Receive Date: 20080926
  Receipt Date: 20080915
  Transmission Date: 20090109
  Serious: Yes (Hospitalization)
  Sender: FDA-Public Use
  Company Number: GB-ELI_LILLY_AND_COMPANY-GB200807002719

PATIENT
  Sex: Female
  Weight: 56 kg

DRUGS (10)
  1. FORTEO [Suspect]
     Indication: OSTEOPOROSIS
     Dosage: UNK, EVERY NIGHT
     Route: 058
     Dates: start: 20071101
  2. FORTEO [Suspect]
     Dosage: UNK, UNKNOWN
     Route: 058
  3. WARFARIN SODIUM [Concomitant]
     Dosage: 1.5/2.0 MG, UNKNOWN
     Route: 065
  4. SLOZEM [Concomitant]
     Dosage: 240 MG, UNKNOWN
     Route: 065
  5. ATORVASTATIN CALCIUM [Concomitant]
     Dosage: 10 MG, UNKNOWN
     Route: 065
  6. BUMETANIDE [Concomitant]
     Dosage: 1 MG, 2 X AM, 1 X PM
     Route: 065
  7. RAMIPRIL [Concomitant]
     Dosage: 1.25 MG, UNKNOWN
     Route: 065
  8. OMEPRAZOLE [Concomitant]
     Dosage: 10 MG, UNKNOWN
     Route: 065
  9. CALCICHEW D3 [Concomitant]
     Dosage: UNK, 2/D
     Route: 065
  10. NICORANDIL [Concomitant]
     Dosage: 10 MG, UNKNOWN
     Route: 065

REACTIONS (2)
  - ABDOMINAL WALL HAEMATOMA [None]
  - INCORRECT ROUTE OF DRUG ADMINISTRATION [None]
